FAERS Safety Report 8798103 (Version 1)
Quarter: 2012Q4

REPORT INFORMATION
  Report Type: Spontaneous
  Country: US (occurrence: None)
  Receive Date: 20120913
  Receipt Date: 20120913
  Transmission Date: 20130627
  Serious: Yes (Other)
  Sender: FDA-Public Use
  Company Number: 2012MA010658

PATIENT
  Age: 78 Year
  Sex: Female

DRUGS (1)
  1. KADIAN [Suspect]

REACTIONS (2)
  - Feeling abnormal [None]
  - Fall [None]
